FAERS Safety Report 18490056 (Version 1)
Quarter: 2020Q4

REPORT INFORMATION
  Report Type: Spontaneous
  Country: US (occurrence: US)
  Receive Date: 20201111
  Receipt Date: 20201111
  Transmission Date: 20210114
  Serious: Yes (Hospitalization)
  Sender: FDA-Public Use
  Company Number: None

PATIENT
  Age: 75 Year
  Sex: Female
  Weight: 88.8 kg

DRUGS (10)
  1. CISPLATIN 45MG [Suspect]
     Active Substance: CISPLATIN
     Dates: end: 20201027
  2. TRADJENTA [Suspect]
     Active Substance: LINAGLIPTIN
  3. GLIMERPIRIDE [Suspect]
     Active Substance: GLIMEPIRIDE
  4. GEMCITABINE HYDROCHLORIDE 1444 MG [Suspect]
     Active Substance: GEMCITABINE HYDROCHLORIDE
     Dates: end: 20201027
  5. LEVOTHYROXINE. [Suspect]
     Active Substance: LEVOTHYROXINE
  6. PACLITAXEL PROTEIN-BOUND PARTICLES (ALBUMIN-BOUND)180 MG [Suspect]
     Active Substance: PACLITAXEL
     Dates: end: 20201027
  7. MORPHINE [Suspect]
     Active Substance: MORPHINE
  8. APIXABAN [Suspect]
     Active Substance: APIXABAN
  9. LISINOPRIL. [Suspect]
     Active Substance: LISINOPRIL
  10. METFORMIN [Suspect]
     Active Substance: METFORMIN HYDROCHLORIDE

REACTIONS (9)
  - Febrile neutropenia [None]
  - Gastrointestinal haemorrhage [None]
  - Physical deconditioning [None]
  - Enterococcus test positive [None]
  - Haematemesis [None]
  - Thrombocytopenia [None]
  - Haematochezia [None]
  - Bacteraemia [None]
  - Bedridden [None]

NARRATIVE: CASE EVENT DATE: 20201102
